FAERS Safety Report 8682020 (Version 2)
Quarter: 2012Q4

REPORT INFORMATION
  Report Type: 
  Country: BR (occurrence: BR)
  Receive Date: 20120725
  Receipt Date: 20121019
  Transmission Date: 20130627
  Serious: Yes (Hospitalization)
  Sender: FDA-Public Use
  Company Number: BR-ROCHE-1090149

PATIENT
  Sex: Male
  Weight: 71 kg

DRUGS (7)
  1. XOLAIR [Suspect]
     Indication: ASTHMA
     Route: 065
  2. XOLAIR [Suspect]
     Indication: DYSPNOEA
  3. FORASEQ [Suspect]
     Indication: ASTHMA
     Dosage: 12/400 mcg
     Route: 065
  4. FORASEQ [Suspect]
     Indication: DYSPNOEA
  5. BAMIFIX [Concomitant]
  6. LOSARTAN [Concomitant]
  7. DISGREN (BRAZIL) [Concomitant]

REACTIONS (8)
  - Pneumonia [Recovering/Resolving]
  - Asthma [Recovering/Resolving]
  - Ischaemia [Recovering/Resolving]
  - Blood pressure increased [Recovering/Resolving]
  - Dysphonia [Not Recovered/Not Resolved]
  - Nasopharyngitis [Recovering/Resolving]
  - Malaise [Recovering/Resolving]
  - Cough [Recovering/Resolving]
